FAERS Safety Report 11586692 (Version 2)
Quarter: 2015Q4

REPORT INFORMATION
  Report Type: Spontaneous
  Country: US (occurrence: US)
  Receive Date: 20151001
  Receipt Date: 20151217
  Transmission Date: 20160304
  Serious: Yes (Other)
  Sender: FDA-Public Use
  Company Number: US-PFIZER INC-2015324135

PATIENT
  Age: 63 Year
  Sex: Male

DRUGS (1)
  1. XELJANZ [Suspect]
     Active Substance: TOFACITINIB CITRATE
     Dosage: 5 MG, 2X/DAY
     Dates: start: 201401

REACTIONS (7)
  - Intervertebral disc injury [Unknown]
  - Condition aggravated [Unknown]
  - Diverticulitis [Unknown]
  - Osteoarthritis [Unknown]
  - Fatigue [Unknown]
  - Rheumatoid arthritis [Unknown]
  - Gout [Unknown]

NARRATIVE: CASE EVENT DATE: 201411
